APPROVED DRUG PRODUCT: LEVETIRACETAM
Active Ingredient: LEVETIRACETAM
Strength: 100MG/ML
Dosage Form/Route: SOLUTION;ORAL
Application: A218080 | Product #001 | TE Code: AA
Applicant: GUARDIAN DRUG CO INC
Approved: Nov 21, 2025 | RLD: No | RS: No | Type: RX